FAERS Safety Report 8803067 (Version 2)
Quarter: 2012Q4

REPORT INFORMATION
  Report Type: 
  Country: GB (occurrence: GB)
  Receive Date: 20120924
  Receipt Date: 20120926
  Transmission Date: 20130627
  Serious: Yes (Hospitalization, Other)
  Sender: FDA-Public Use
  Company Number: GB-PFIZER INC-2012231320

PATIENT
  Age: 64 Year
  Sex: Male

DRUGS (3)
  1. FLUDARABINE PHOSPHATE [Suspect]
     Indication: LYMPHOPLASMACYTOID LYMPHOMA/IMMUNOCYTOMA REFRACTORY
     Dosage: 5 cycles, UNK
  2. CYCLOPHOSPHAMIDE [Concomitant]
     Indication: LYMPHOPLASMACYTOID LYMPHOMA/IMMUNOCYTOMA REFRACTORY
     Dosage: 5 cycles, UNK
  3. RITUXIMAB [Concomitant]
     Indication: LYMPHOPLASMACYTOID LYMPHOMA/IMMUNOCYTOMA REFRACTORY
     Dosage: 5 cycles, UNK

REACTIONS (1)
  - Cytomegalovirus oesophagitis [Recovering/Resolving]
